FAERS Safety Report 23977342 (Version 1)
Quarter: 2024Q2

REPORT INFORMATION
  Report Type: Spontaneous
  Country: TR (occurrence: TR)
  Receive Date: 20240614
  Receipt Date: 20240614
  Transmission Date: 20240716
  Serious: Yes (Other)
  Sender: FDA-Public Use
  Company Number: TR-GILEAD-2024-0675646

PATIENT
  Age: 44 Year

DRUGS (1)
  1. TRODELVY [Suspect]
     Active Substance: SACITUZUMAB GOVITECAN-HZIY
     Indication: Triple negative breast cancer
     Dosage: 14TH CYCLE
     Route: 065
     Dates: start: 202304, end: 20240321

REACTIONS (2)
  - Disease progression [Unknown]
  - Headache [Unknown]

NARRATIVE: CASE EVENT DATE: 20240401
